FAERS Safety Report 8489801-0 (Version None)
Quarter: 2012Q3

REPORT INFORMATION
  Report Type: 
  Country: None (occurrence: None)
  Receive Date: 20120705
  Receipt Date: 20120625
  Transmission Date: 20120928
  Serious: Yes (Other)
  Sender: FDA-Public Use
  Company Number: FR-B.I. PHARMACEUTICALS,INC./RIDGEFIELD-2012-FF-00052FF

PATIENT
  Sex: Male

DRUGS (6)
  1. VIRAMUNE [Suspect]
     Indication: HIV INFECTION
     Dosage: 400 MG
     Route: 048
     Dates: start: 20111201, end: 20111223
  2. NORVIR [Concomitant]
     Indication: HIV INFECTION
     Dates: start: 20110201
  3. DILTIAZEM HCL [Concomitant]
     Dates: start: 20110201
  4. KARDEGIC [Concomitant]
     Dates: start: 20110201
  5. CRESTOR [Suspect]
     Indication: CARDIOVASCULAR EVENT PROPHYLAXIS
     Route: 048
     Dates: start: 20090301, end: 20111223
  6. TRUVADA [Concomitant]
     Indication: HIV INFECTION
     Dosage: 200 MG/245 MG
     Route: 048
     Dates: start: 20090401, end: 20111223

REACTIONS (1)
  - MIXED LIVER INJURY [None]
